FAERS Safety Report 8106699-0 (Version None)
Quarter: 2012Q1

REPORT INFORMATION
  Report Type: 
  Country: None (occurrence: None)
  Receive Date: 20120202
  Receipt Date: 20120127
  Transmission Date: 20120608
  Serious: Yes (Death, Other)
  Sender: FDA-Public Use
  Company Number: US-COVIDIEN/TYCO HEALTHCARE/MALLINCKRODT-T201200523

PATIENT
  Age: 31 Year
  Sex: Male

DRUGS (1)
  1. FENTANYL CITRATE [Suspect]

REACTIONS (2)
  - DRUG DIVERSION [None]
  - OVERDOSE [None]
